FAERS Safety Report 13640228 (Version 1)
Quarter: 2017Q2

REPORT INFORMATION
  Report Type: Report from Study
  Country: None (occurrence: US)
  Receive Date: 20170610
  Receipt Date: 20170610
  Transmission Date: 20170830
  Serious: Yes (Hospitalization, Other)
  Sender: FDA-Public Use
  Company Number: US-ABBVIE-17K-163-1995764-00

PATIENT
  Sex: Female

DRUGS (1)
  1. HUMIRA [Suspect]
     Active Substance: ADALIMUMAB
     Indication: CROHN^S DISEASE
     Route: 058

REACTIONS (12)
  - Hip fracture [Unknown]
  - Abdominal operation [Unknown]
  - Foot fracture [Unknown]
  - Crohn^s disease [Unknown]
  - Defaecation urgency [Unknown]
  - Injection site pain [Not Recovered/Not Resolved]
  - Osteoarthritis [Unknown]
  - Upper limb fracture [Unknown]
  - Fall [Recovering/Resolving]
  - Fall [Unknown]
  - Cholecystostomy [Unknown]
  - Abdominal hernia [Unknown]

NARRATIVE: CASE EVENT DATE: 2015
